FAERS Safety Report 26112119 (Version 1)
Quarter: 2025Q4

REPORT INFORMATION
  Report Type: Spontaneous
  Country: CN (occurrence: CN)
  Receive Date: 20251202
  Receipt Date: 20251202
  Transmission Date: 20260118
  Serious: Yes (Life-Threatening, Other)
  Sender: BAYER HEALTHCARE PHARMACEUTICALS INC.
  Company Number: CN-BAYER-2025A158041

PATIENT
  Age: 71 Year
  Sex: Male

DRUGS (2)
  1. ULTRAVIST [Suspect]
     Active Substance: IOPROMIDE
     Indication: Computerised tomogram limb
     Dosage: 20 ML, ONCE
     Route: 042
     Dates: start: 20251126, end: 20251126
  2. ULTRAVIST [Suspect]
     Active Substance: IOPROMIDE
     Indication: Diabetic foot

REACTIONS (6)
  - Indifference [Recovering/Resolving]
  - Vomiting [Recovering/Resolving]
  - Hyperhidrosis [Recovering/Resolving]
  - Cardiac arrest [Recovered/Resolved]
  - Respiratory arrest [Recovered/Resolved]
  - Loss of consciousness [None]

NARRATIVE: CASE EVENT DATE: 20251126
